FAERS Safety Report 10257126 (Version 2)
Quarter: 2014Q3

REPORT INFORMATION
  Report Type: Spontaneous
  Country: US (occurrence: US)
  Receive Date: 20140625
  Receipt Date: 20140903
  Transmission Date: 20150326
  Serious: No
  Sender: FDA-Public Use
  Company Number: US-AMGEN INC.-USASP2014046660

PATIENT
  Age: 80 Year
  Sex: Male

DRUGS (1)
  1. ENBREL [Suspect]
     Active Substance: ETANERCEPT
     Indication: RHEUMATOID ARTHRITIS
     Dosage: 50MG ONCE EVERY 14 DAYS
     Route: 065
     Dates: start: 201206

REACTIONS (8)
  - Hair growth abnormal [Not Recovered/Not Resolved]
  - Very low density lipoprotein abnormal [Unknown]
  - Constipation [Not Recovered/Not Resolved]
  - Blood triglycerides abnormal [Unknown]
  - Blood cholesterol increased [Not Recovered/Not Resolved]
  - High density lipoprotein abnormal [Unknown]
  - Abdominal distension [Not Recovered/Not Resolved]
  - Low density lipoprotein increased [Not Recovered/Not Resolved]

NARRATIVE: CASE EVENT DATE: 20140505
